FAERS Safety Report 8005723-3 (Version None)
Quarter: 2011Q4

REPORT INFORMATION
  Report Type: 
  Country: None (occurrence: None)
  Receive Date: 20111223
  Receipt Date: 20111220
  Transmission Date: 20120403
  Serious: Yes (Life-Threatening, Hospitalization)
  Sender: FDA-Public Use
  Company Number: PHHY2011GB89959

PATIENT
  Age: 16 Year
  Sex: Male
  Weight: 67 kg

DRUGS (4)
  1. AMOXICILLIN [Suspect]
     Route: 065
     Dates: start: 20110601
  2. ACETAMINOPHEN [Concomitant]
  3. CARBAMAZEPINE [Suspect]
     Indication: CONVULSION
     Route: 048
     Dates: start: 20110601, end: 20110707
  4. TOPIRAMATE [Suspect]
     Dates: start: 20110707

REACTIONS (4)
  - DRUG RASH WITH EOSINOPHILIA AND SYSTEMIC SYMPTOMS [None]
  - RASH GENERALISED [None]
  - LIVER FUNCTION TEST ABNORMAL [None]
  - COAGULOPATHY [None]
